FAERS Safety Report 15907035 (Version 2)
Quarter: 2019Q2

REPORT INFORMATION
  Report Type: Spontaneous
  Country: US (occurrence: US)
  Receive Date: 20190204
  Receipt Date: 20190411
  Transmission Date: 20190711
  Serious: No
  Sender: FDA-Public Use
  Company Number: US-PFIZER INC-2019035671

PATIENT
  Age: 57 Year
  Sex: Male

DRUGS (1)
  1. CHANTIX [Suspect]
     Active Substance: VARENICLINE TARTRATE
     Indication: SMOKING CESSATION THERAPY
     Dosage: UNK
     Route: 048
     Dates: start: 2009, end: 2009

REACTIONS (6)
  - Psychotic disorder [Unknown]
  - Feeling abnormal [Unknown]
  - Disturbance in attention [Recovered/Resolved]
  - Drug hypersensitivity [Unknown]
  - Confusional state [Recovered/Resolved]
  - Abdominal discomfort [Recovered/Resolved]

NARRATIVE: CASE EVENT DATE: 2009
